FAERS Safety Report 9357349 (Version 2)
Quarter: 2013Q2

REPORT INFORMATION
  Report Type: Spontaneous
  Country: CA (occurrence: CA)
  Receive Date: 20130620
  Receipt Date: 20130621
  Transmission Date: 20140414
  Serious: Yes (Hospitalization)
  Sender: FDA-Public Use
  Company Number: CA-AMGEN-CANSP2013042435

PATIENT
  Age: 73 Year
  Sex: Female

DRUGS (5)
  1. NEUPOGEN [Suspect]
     Indication: BREAST CANCER
     Dosage: UNK
     Route: 065
     Dates: start: 20130509
  2. CHEMOTHERAPEUTICS [Concomitant]
     Indication: BREAST CANCER
     Dosage: UNK
  3. FOSAMAX [Concomitant]
     Dosage: EVERY MONDAY ONCE A WEEK
  4. MULTIVIT                           /07504101/ [Concomitant]
     Dosage: UNK
  5. CALCIUM [Concomitant]
     Dosage: UNK

REACTIONS (3)
  - Febrile neutropenia [Unknown]
  - Hypotension [Unknown]
  - Pyrexia [Not Recovered/Not Resolved]
